FAERS Safety Report 7901974-4 (Version None)
Quarter: 2011Q4

REPORT INFORMATION
  Report Type: 
  Country: None (occurrence: None)
  Receive Date: 20111108
  Receipt Date: 20111027
  Transmission Date: 20120403
  Serious: Yes (Other)
  Sender: FDA-Public Use
  Company Number: US-BAYER-2011-049319

PATIENT
  Age: 20 Year
  Sex: Female

DRUGS (7)
  1. TRAMADOL HCL [Concomitant]
  2. NAPROXEN [Concomitant]
  3. YASMIN [Suspect]
     Dosage: UNK
     Dates: start: 20081101, end: 20100201
  4. FLUOXETINE HYDROCHLORIDE [Concomitant]
  5. YAZ [Suspect]
     Dosage: UNK
     Dates: start: 20081101, end: 20100201
  6. DROSPIRENONE AND ETHINYL ESTRADIOL [Suspect]
     Dosage: UNK
     Dates: start: 20081101, end: 20100201
  7. FAMOTIDINE [Concomitant]

REACTIONS (7)
  - GALLBLADDER DISORDER [None]
  - PAIN [None]
  - INJURY [None]
  - GENERAL PHYSICAL HEALTH DETERIORATION [None]
  - EMOTIONAL DISTRESS [None]
  - CHOLECYSTITIS CHRONIC [None]
  - ANXIETY [None]
